FAERS Safety Report 5319969-6 (Version None)
Quarter: 2007Q2

REPORT INFORMATION
  Report Type: 
  Country: None (occurrence: None)
  Receive Date: 20070509
  Receipt Date: 20070424
  Transmission Date: 20071010
  Serious: Yes (Hospitalization)
  Sender: FDA-Public Use
  Company Number: US-BAYER-200616835BWH

PATIENT
  Age: 49 Year
  Sex: Male

DRUGS (12)
  1. AVELOX [Suspect]
     Indication: CHRONIC SINUSITIS
     Route: 048
     Dates: start: 20061120
  2. AVONEX [Concomitant]
  3. CRESTOR [Concomitant]
  4. ZANAFLEX [Concomitant]
     Indication: MUSCLE SPASMS
  5. AMOXICILLIN [Concomitant]
     Dosage: TOTAL DAILY DOSE: 1500 MG  UNIT DOSE: 500 MG
     Route: 048
  6. HYDROCODONE [Concomitant]
     Indication: INJECTION
  7. ZANAFLEX [Concomitant]
  8. CRESTOR [Concomitant]
  9. OSTEO BI-FLEX [Concomitant]
  10. IBUPROFEN [Concomitant]
     Route: 048
  11. TYLENOL [Concomitant]
     Route: 048
  12. PREDNISONE TAB [Concomitant]
     Dates: start: 20070126

REACTIONS (11)
  - ALANINE AMINOTRANSFERASE INCREASED [None]
  - ASPARTATE AMINOTRANSFERASE INCREASED [None]
  - AUTOIMMUNE HEPATITIS [None]
  - BILIRUBIN CONJUGATED INCREASED [None]
  - BLOOD ALBUMIN INCREASED [None]
  - BLOOD ALKALINE PHOSPHATASE INCREASED [None]
  - BLOOD BILIRUBIN INCREASED [None]
  - DYSPEPSIA [None]
  - JAUNDICE [None]
  - NAUSEA [None]
  - URTICARIA GENERALISED [None]
